FAERS Safety Report 7305808-0 (Version None)
Quarter: 2011Q1

REPORT INFORMATION
  Report Type: 
  Country: None (occurrence: None)
  Receive Date: 20110222
  Receipt Date: 20110215
  Transmission Date: 20110831
  Serious: Yes (Death, Other)
  Sender: FDA-Public Use
  Company Number: CA-ROCHE-746819

PATIENT
  Sex: Female
  Weight: 54 kg

DRUGS (6)
  1. INSULIN [Concomitant]
  2. DILANTIN [Concomitant]
  3. DECADRON [Concomitant]
  4. IMMOVANE [Concomitant]
  5. BEVACIZUMAB [Suspect]
     Indication: GLIOBLASTOMA
     Route: 042
     Dates: start: 20101126, end: 20110113
  6. KEPPRA [Concomitant]

REACTIONS (3)
  - THROMBOSIS [None]
  - DEATH [None]
  - CEREBRAL HAEMORRHAGE [None]
